FAERS Safety Report 20748509 (Version 1)
Quarter: 2022Q2

REPORT INFORMATION
  Report Type: Spontaneous
  Country: CN (occurrence: CN)
  Receive Date: 20220426
  Receipt Date: 20220426
  Transmission Date: 20220721
  Serious: Yes (Hospitalization)
  Sender: FDA-Public Use
  Company Number: CN-MTPC-MTPC2022-0010442

PATIENT
  Age: 59 Year
  Sex: Female

DRUGS (1)
  1. EDARAVONE [Suspect]
     Active Substance: EDARAVONE
     Indication: Cerebrovascular accident
     Route: 065

REACTIONS (1)
  - Neurosyphilis [Unknown]
